FAERS Safety Report 5734880-4 (Version None)
Quarter: 2008Q2

REPORT INFORMATION
  Report Type: 
  Country: None (occurrence: None)
  Receive Date: 20080512
  Receipt Date: 20080507
  Transmission Date: 20081010
  Serious: Yes (Hospitalization)
  Sender: FDA-Public Use
  Company Number: B0507898A

PATIENT
  Age: 83 Year
  Sex: Female
  Weight: 80 kg

DRUGS (15)
  1. ZELITREX [Suspect]
     Indication: HERPES ZOSTER
     Dosage: 500MG FOUR TIMES PER DAY
     Route: 048
     Dates: start: 20080131, end: 20080203
  2. RENAGEL [Concomitant]
     Dosage: 800MG TWICE PER DAY
     Route: 048
  3. ADALAT [Concomitant]
     Dosage: 60MG PER DAY
     Route: 048
  4. METOPROLOL TARTRATE [Concomitant]
     Dosage: 100MG PER DAY
     Route: 065
  5. LIPITOR [Concomitant]
     Dosage: 40MG PER DAY
     Route: 065
  6. ASCAL CARDIO [Concomitant]
     Dosage: 100MG PER DAY
     Route: 048
  7. PLAVIX [Concomitant]
     Dosage: 75MG PER DAY
     Route: 048
  8. ALLOPURINOL [Concomitant]
     Dosage: 100MG PER DAY
     Route: 065
  9. TRITACE [Concomitant]
     Dosage: 10MG PER DAY
     Route: 048
  10. LANSOPRAZOLE [Concomitant]
     Dosage: 15MG TWICE PER DAY
     Route: 048
  11. ACETAMINOPHEN [Concomitant]
     Dosage: 500MG SIX TIMES PER DAY
     Route: 065
  12. CHLOORTALIDON [Concomitant]
     Dosage: 25MG PER DAY
     Route: 048
     Dates: end: 20080201
  13. AMITRIPTYLINE HCL [Concomitant]
     Dosage: 25MG PER DAY
     Route: 065
  14. ARANESP [Concomitant]
  15. ZOPICLONE [Concomitant]
     Route: 065

REACTIONS (9)
  - BLOOD CREATININE INCREASED [None]
  - CONSTIPATION [None]
  - DELIRIUM [None]
  - DYSARTHRIA [None]
  - DYSPHAGIA [None]
  - INCONTINENCE [None]
  - OEDEMA [None]
  - ORTHOPNOEA [None]
  - RENAL FAILURE ACUTE [None]
